FAERS Safety Report 4763882-X (Version None)
Quarter: 2005Q3

REPORT INFORMATION
  Report Type: 
  Country: None (occurrence: None)
  Receive Date: 20050906
  Receipt Date: 20050523
  Transmission Date: 20060218
  Serious: No
  Sender: FDA-Public Use
  Company Number: 2005-BP-08562BP

PATIENT
  Age: 84 Year
  Sex: Female
  Weight: 66 kg

DRUGS (6)
  1. SPIRIVA [Suspect]
     Indication: ASTHMA
     Dosage: 18 MCG (18 MCG, QD), IH
     Route: 055
     Dates: start: 20050413, end: 20050519
  2. SPIRIVA [Suspect]
     Indication: CHRONIC OBSTRUCTIVE PULMONARY DISEASE
     Dosage: 18 MCG (18 MCG, QD), IH
     Route: 055
     Dates: start: 20050413, end: 20050519
  3. ATENOLOL [Concomitant]
  4. ANTIVERT (MECLOZINE HYDROCHLORIDE) [Concomitant]
  5. RANITIDINE [Concomitant]
  6. ATROVENT [Concomitant]

REACTIONS (4)
  - ANGIONEUROTIC OEDEMA [None]
  - CANDIDIASIS [None]
  - CHEILITIS [None]
  - DRY MOUTH [None]
